FAERS Safety Report 9920219 (Version 1)
Quarter: 2014Q1

REPORT INFORMATION
  Report Type: Spontaneous
  Country: GB (occurrence: GB)
  Receive Date: 20140224
  Receipt Date: 20140224
  Transmission Date: 20141002
  Serious: Yes (Other)
  Sender: FDA-Public Use
  Company Number: PHHY2014GB018012

PATIENT
  Age: 51 Year
  Sex: Female
  Weight: 57.5 kg

DRUGS (1)
  1. DOXYCYCLINE [Suspect]
     Dosage: 100 MG, UNK
     Route: 048
     Dates: start: 20140129

REACTIONS (2)
  - Dizziness [Not Recovered/Not Resolved]
  - Headache [Not Recovered/Not Resolved]
